FAERS Safety Report 14335306 (Version 14)
Quarter: 2019Q2

REPORT INFORMATION
  Report Type: Report from Study
  Country: BR (occurrence: BR)
  Receive Date: 20171229
  Receipt Date: 20190509
  Transmission Date: 20190711
  Serious: Yes (Hospitalization)
  Sender: FDA-Public Use
  Company Number: BR-ROCHE-1977807

PATIENT
  Age: 65 Year
  Sex: Female
  Weight: 64 kg

DRUGS (32)
  1. PARACETAMOL [Concomitant]
     Active Substance: ACETAMINOPHEN
     Route: 065
     Dates: start: 20171123, end: 20171130
  2. SODIUM BICARBONATE. [Concomitant]
     Active Substance: SODIUM BICARBONATE
     Indication: DIARRHOEA
     Route: 065
     Dates: start: 20171107, end: 20171107
  3. PREDNISONE. [Concomitant]
     Active Substance: PREDNISONE
     Route: 065
     Dates: start: 20171123, end: 20171130
  4. BEVACIZUMAB. [Suspect]
     Active Substance: BEVACIZUMAB
     Indication: COLORECTAL CANCER METASTATIC
     Dosage: DATE OF MOST RECENT DOSE (320 MG) OF BEVACIZUMAB (AT 09:45) PRIOR TO SAE: 26/JUL/2017
     Route: 042
     Dates: start: 20170608, end: 20180105
  5. ONDANSETRON [Concomitant]
     Active Substance: ONDANSETRON
     Indication: DIARRHOEA
     Route: 065
     Dates: start: 20170608, end: 20170608
  6. DIPIRONE [Concomitant]
     Active Substance: METAMIZOLE SODIUM
     Indication: DIARRHOEA
     Route: 065
     Dates: start: 20171107, end: 20171110
  7. ATEZOLIZUMAB. [Suspect]
     Active Substance: ATEZOLIZUMAB
     Indication: COLORECTAL CANCER METASTATIC
     Dosage: MOST RECENT DOSE PRIOR TO ACUTE RENAL FAILURE ON 06/DEC/2017, DOSE: 840 MG
     Route: 042
     Dates: start: 20171101, end: 20180105
  8. COBIMETINIB. [Suspect]
     Active Substance: COBIMETINIB
     Indication: COLORECTAL CANCER METASTATIC
     Dosage: MOST RECENT DOSE PRIOR TO ACUTE RENAL FAILURE ON 06/DEC/2017, DOSE: 20 MG
     Route: 048
     Dates: start: 20171101, end: 20180105
  9. 5-FLUOROURACIL [FLUOROURACIL] [Suspect]
     Active Substance: FLUOROURACIL
     Indication: COLORECTAL CANCER METASTATIC
     Dosage: DATE OF MOST RECENT DOSE OF FLUOROURACIL PRIOR TO SAE: 26/JUL/2017
     Route: 042
     Dates: start: 20170608, end: 20180105
  10. ATENOLOL. [Concomitant]
     Active Substance: ATENOLOL
     Indication: HYPERTENSION
     Route: 065
     Dates: start: 1996
  11. ONDANSETRON [Concomitant]
     Active Substance: ONDANSETRON
     Route: 065
     Dates: start: 20171107, end: 20171112
  12. PREDNISONE. [Concomitant]
     Active Substance: PREDNISONE
     Indication: DIARRHOEA
     Route: 065
     Dates: start: 20171112, end: 20171112
  13. CAPTOPRIL. [Concomitant]
     Active Substance: CAPTOPRIL
     Indication: HYPERTENSION
     Route: 065
     Dates: start: 1996
  14. HEPARIN SODIUM. [Concomitant]
     Active Substance: HEPARIN SODIUM
     Route: 065
     Dates: start: 20171107, end: 20171110
  15. PREDNISONE. [Concomitant]
     Active Substance: PREDNISONE
     Route: 065
     Dates: start: 20171215, end: 20171224
  16. FOLINIC ACID [Suspect]
     Active Substance: LEUCOVORIN
     Indication: COLORECTAL CANCER METASTATIC
     Dosage: DATE OF MOST RECENT DOSE OF FOLINIC ACID PRIOR TO SAE: 26/JUL/2017
     Route: 042
     Dates: start: 20170608, end: 20180105
  17. DIPIRONE [Concomitant]
     Active Substance: METAMIZOLE SODIUM
     Route: 065
     Dates: start: 20171123, end: 20171130
  18. GLUCOSE [Concomitant]
     Active Substance: DEXTROSE
     Indication: DIARRHOEA
     Route: 065
     Dates: start: 20171107, end: 20171112
  19. MORFINE [Concomitant]
     Active Substance: MORPHINE
     Indication: DIARRHOEA
     Route: 065
     Dates: start: 20171107, end: 20171112
  20. PARACETAMOL [Concomitant]
     Active Substance: ACETAMINOPHEN
     Indication: DIARRHOEA
     Route: 065
     Dates: start: 20171106, end: 20171106
  21. LOPERAMIDE [Concomitant]
     Active Substance: LOPERAMIDE
     Route: 065
     Dates: start: 20171108, end: 20171112
  22. DIMETICONE [Concomitant]
     Active Substance: DIMETHICONE
     Indication: DIARRHOEA
     Route: 065
     Dates: start: 20171128, end: 20171130
  23. HEPARIN SODIUM. [Concomitant]
     Active Substance: HEPARIN SODIUM
     Indication: DIARRHOEA
     Dosage: DOSE: 5000 UNIT
     Route: 065
     Dates: start: 20171123, end: 20171130
  24. PREDNISONE. [Concomitant]
     Active Substance: PREDNISONE
     Route: 065
     Dates: start: 20171107
  25. AMPICILLIN [Concomitant]
     Active Substance: AMPICILLIN
     Indication: DIARRHOEA
     Route: 065
     Dates: start: 20171107, end: 20171113
  26. LOPERAMIDE [Concomitant]
     Active Substance: LOPERAMIDE
     Route: 065
     Dates: start: 20171104
  27. ONDANSETRON [Concomitant]
     Active Substance: ONDANSETRON
     Indication: PREMEDICATION
     Route: 065
     Dates: start: 20170620
  28. RANITIDINE. [Concomitant]
     Active Substance: RANITIDINE
     Indication: PREMEDICATION
     Route: 065
     Dates: start: 20170608
  29. METILPREDNISOLONE [Concomitant]
     Active Substance: METHYLPREDNISOLONE
     Indication: DIARRHOEA
     Route: 065
     Dates: start: 20171107, end: 20171111
  30. LOPERAMIDE [Concomitant]
     Active Substance: LOPERAMIDE
     Indication: DIARRHOEA
     Route: 065
     Dates: start: 20171123, end: 20171130
  31. OXALIPLATIN. [Suspect]
     Active Substance: OXALIPLATIN
     Indication: COLORECTAL CANCER METASTATIC
     Dosage: DATE OF MOST RECENT DOSE OF OXALIPALTIN PRIOR TO SAE: 26/JUL/2017
     Route: 042
     Dates: start: 20170608, end: 20180105
  32. DEXAMETHASONE. [Concomitant]
     Active Substance: DEXAMETHASONE
     Indication: PREMEDICATION
     Route: 065
     Dates: start: 20170608

REACTIONS (2)
  - Acute kidney injury [Recovered/Resolved]
  - Pyelonephritis [Recovered/Resolved]

NARRATIVE: CASE EVENT DATE: 20170809
